FAERS Safety Report 4610611-6 (Version None)
Quarter: 2005Q1

REPORT INFORMATION
  Report Type: 
  Country: None (occurrence: None)
  Receive Date: 20050316
  Receipt Date: 20050303
  Transmission Date: 20050727
  Serious: Yes (Other)
  Sender: FDA-Public Use
  Company Number: 2005039957

PATIENT
  Age: 29 Year
  Sex: Female

DRUGS (1)
  1. NEOSPORIN [Suspect]
     Indication: RASH PAPULAR
     Dosage: ^1/2 A PEA SIZE^, TOPICAL
     Route: 061
     Dates: start: 20041201

REACTIONS (2)
  - ANAPHYLACTIC SHOCK [None]
  - APPLICATION SITE IRRITATION [None]
